FAERS Safety Report 12256287 (Version 2)
Quarter: 2016Q2

REPORT INFORMATION
  Report Type: Spontaneous
  Country: US (occurrence: US)
  Receive Date: 20160412
  Receipt Date: 20160530
  Transmission Date: 20160815
  Serious: No
  Sender: FDA-Public Use
  Company Number: US-ASTRAZENECA-2016SE36280

PATIENT
  Sex: Female

DRUGS (2)
  1. ZYRTEC [Concomitant]
     Active Substance: CETIRIZINE HYDROCHLORIDE
  2. RHINOCORT [Suspect]
     Active Substance: BUDESONIDE
     Route: 045

REACTIONS (2)
  - Hypersensitivity [Unknown]
  - Drug ineffective [Unknown]
